FAERS Safety Report 16569285 (Version 2)
Quarter: 2019Q4

REPORT INFORMATION
  Report Type: Report from Study
  Country: US (occurrence: US)
  Receive Date: 20190715
  Receipt Date: 20191029
  Transmission Date: 20200122
  Serious: Yes (Hospitalization)
  Sender: FDA-Public Use
  Company Number: US-ALEXION PHARMACEUTICALS INC.-A201803162

PATIENT
  Age: 2 Year
  Sex: Male
  Weight: 12.7 kg

DRUGS (28)
  1. AQUADEKS                           /07679501/ [Concomitant]
     Active Substance: MINERALS\VITAMINS
     Indication: PRODUCT USED FOR UNKNOWN INDICATION
     Dosage: 1 TAB, QD PLACED IN G TUBE
     Route: 048
  2. HYDROCORTISONE                     /00028604/ [Concomitant]
     Indication: ADRENAL INSUFFICIENCY
     Dosage: 0.5 ML, TID PLACE 1 TAB IN G TUBE
     Route: 048
  3. HYDROCORTISONE                     /00028604/ [Concomitant]
     Dosage: 0.5 ML, TID
     Route: 048
  4. SOLU-CORTEF [Concomitant]
     Active Substance: HYDROCORTISONE SODIUM SUCCINATE
     Indication: ADRENOCORTICAL INSUFFICIENCY ACUTE
  5. FERROUS SULFATE. [Concomitant]
     Active Substance: FERROUS SULFATE
     Indication: SUPPLEMENTATION THERAPY
     Dosage: 1.7 ML, BID (G-TUBE)
     Route: 050
  6. HYDROCORTISONE                     /00028604/ [Concomitant]
     Dosage: 0.5 ML, PRN
     Route: 030
  7. TYLENOL [Concomitant]
     Active Substance: ACETAMINOPHEN
     Indication: PAIN
     Dosage: 5.5 ML, Q4H
     Route: 048
  8. SOLU-CORTEF [Concomitant]
     Active Substance: HYDROCORTISONE SODIUM SUCCINATE
     Indication: PROPHYLAXIS
     Dosage: 0.5 ML, PRN
     Route: 030
  9. VENOFER [Concomitant]
     Active Substance: IRON SUCROSE
     Indication: SUPPLEMENTATION THERAPY
     Dosage: 24 MG, SINGLE
     Route: 042
     Dates: start: 20180222, end: 20180222
  10. MUPIROCIN. [Concomitant]
     Active Substance: MUPIROCIN
     Indication: PROPHYLAXIS
     Dosage: 1 APPLICATION, TID
     Route: 061
  11. SENNOSIDES A+B [Concomitant]
     Active Substance: SENNOSIDES A AND B
     Indication: CONSTIPATION
     Dosage: 7.5 ML, BID
     Route: 048
  12. CHOLECALCIFEROL [Concomitant]
     Active Substance: CHOLECALCIFEROL
     Dosage: 3 ML, QD
     Route: 048
  13. IBUPROFEN. [Concomitant]
     Active Substance: IBUPROFEN
     Indication: PAIN
     Dosage: 5.7 ML, PRN (G-TUBE)
     Route: 050
  14. IBUPROFEN. [Concomitant]
     Active Substance: IBUPROFEN
     Indication: PYREXIA
  15. CHOLECALCIFEROL [Concomitant]
     Active Substance: CHOLECALCIFEROL
     Indication: SUPPLEMENTATION THERAPY
     Dosage: 3 ML, QD IN FEEDING TUBE
     Route: 048
     Dates: start: 20180221
  16. FAMOTIDINE. [Concomitant]
     Active Substance: FAMOTIDINE
     Indication: PROPHYLAXIS
     Dosage: 1 MG/KG, QD
     Route: 042
     Dates: start: 20180222
  17. FAMOTIDINE. [Concomitant]
     Active Substance: FAMOTIDINE
     Dosage: 1 MG/KG, QD
     Route: 042
  18. SOLU-CORTEF [Concomitant]
     Active Substance: HYDROCORTISONE SODIUM SUCCINATE
     Indication: ADRENOCORTICAL INSUFFICIENCY ACUTE
     Dosage: 10 MG, UNK
     Route: 065
  19. ADEK [Concomitant]
     Indication: SUPPLEMENTATION THERAPY
     Dosage: 1 TAB, QD (G-TUBE)
     Route: 050
  20. KANUMA [Suspect]
     Active Substance: SEBELIPASE ALFA
     Dosage: UNK UNK, QW
     Route: 058
     Dates: start: 20160630
  21. SENOKOT [Concomitant]
     Active Substance: SENNOSIDES
     Indication: PRODUCT USED FOR UNKNOWN INDICATION
     Dosage: 7.5 ML, BID
     Route: 048
  22. SMOFLIPID [Concomitant]
     Active Substance: FISH OIL\MEDIUM-CHAIN TRIGLYCERIDES\OLIVE OIL\SOYBEAN OIL
     Indication: PRODUCT USED FOR UNKNOWN INDICATION
     Dosage: UNK
     Route: 065
  23. GLYCERIN                           /00200601/ [Concomitant]
     Active Substance: GLYCERIN
     Indication: CONSTIPATION
     Dosage: 1 SUPPOSITORY, QD
     Route: 054
  24. KANUMA [Suspect]
     Active Substance: SEBELIPASE ALFA
     Indication: LYSOSOMAL ACID LIPASE DEFICIENCY
     Dosage: 3 MG/KG
     Route: 058
     Dates: start: 20150911, end: 20160531
  25. TYLENOL [Concomitant]
     Active Substance: ACETAMINOPHEN
     Indication: PYREXIA
     Dosage: 5.5 ML, PRN (G-TUBE)
     Route: 050
  26. VENOFER [Concomitant]
     Active Substance: IRON SUCROSE
     Dosage: 24 MG, SINGLE
     Route: 042
  27. CEFTRIAXONE. [Concomitant]
     Active Substance: CEFTRIAXONE
     Indication: PROPHYLAXIS
     Dosage: UNK
     Route: 065
  28. NORMAL SALINE [Concomitant]
     Active Substance: SODIUM CHLORIDE
     Indication: DEHYDRATION
     Dosage: 40 ML/KG, UNK
     Route: 042

REACTIONS (3)
  - Diarrhoea [Recovered/Resolved]
  - Parainfluenzae virus infection [Recovered/Resolved]
  - Vomiting [Recovered/Resolved]

NARRATIVE: CASE EVENT DATE: 20180314
